FAERS Safety Report 6232685-1 (Version None)
Quarter: 2009Q2

REPORT INFORMATION
  Report Type: 
  Country: None (occurrence: None)
  Receive Date: 20090615
  Receipt Date: 20090611
  Transmission Date: 20091009
  Serious: Yes (Life-Threatening, Hospitalization, Disabling)
  Sender: FDA-Public Use
  Company Number: SP02374

PATIENT
  Age: 80 Year
  Sex: Female
  Weight: 59.4212 kg

DRUGS (6)
  1. MOVIPREP [Suspect]
     Indication: COLONOSCOPY
     Dosage: (1 LIT), ORAL
     Route: 048
     Dates: start: 20090504, end: 20090504
  2. DULCOLAX [Suspect]
     Dosage: (2 TABLETS AT NOON), ORAL
     Route: 048
     Dates: start: 20090504, end: 20090504
  3. HYDROCHLOROTHIAZIDE [Concomitant]
  4. QUINAPRIL [Concomitant]
  5. LOVASTATIN [Concomitant]
  6. EVISTA [Concomitant]

REACTIONS (8)
  - DEHYDRATION [None]
  - DIARRHOEA [None]
  - FALL [None]
  - HAEMATOMA [None]
  - HEAD INJURY [None]
  - HYPOKALAEMIA [None]
  - LOSS OF CONSCIOUSNESS [None]
  - VOMITING [None]
